FAERS Safety Report 25543127 (Version 1)
Quarter: 2025Q3

REPORT INFORMATION
  Report Type: Spontaneous
  Country: US (occurrence: US)
  Receive Date: 20250711
  Receipt Date: 20250711
  Transmission Date: 20251020
  Serious: No
  Sender: GLENMARK
  Company Number: US-GLENMARK PHARMACEUTICALS-2025GMK097904

PATIENT

DRUGS (2)
  1. ADAPALENE [Suspect]
     Active Substance: ADAPALENE
     Indication: Acne
     Route: 065
  2. ADAPALENE [Suspect]
     Active Substance: ADAPALENE
     Route: 065

REACTIONS (4)
  - Skin hyperpigmentation [Unknown]
  - Erythema [Unknown]
  - Acne [Unknown]
  - Expired product administered [Unknown]
